FAERS Safety Report 5065121-1 (Version None)
Quarter: 2006Q3

REPORT INFORMATION
  Report Type: 
  Country: None (occurrence: None)
  Receive Date: 20060727
  Receipt Date: 20060727
  Transmission Date: 20061208
  Serious: Yes (Other)
  Sender: FDA-Public Use
  Company Number: None

PATIENT
  Sex: Female

DRUGS (3)
  1. SINGULAIR [Suspect]
     Indication: RHINITIS ALLERGIC
     Dosage: 10 MG PO QD
     Route: 048
     Dates: start: 20060714, end: 20060721
  2. CLARINEX  D-24 [Concomitant]
  3. NASONEX [Concomitant]

REACTIONS (1)
  - PALPITATIONS [None]
